FAERS Safety Report 13756326 (Version 1)
Quarter: 2017Q3

REPORT INFORMATION
  Report Type: Spontaneous
  Country: IT (occurrence: IT)
  Receive Date: 20170714
  Receipt Date: 20170714
  Transmission Date: 20171127
  Serious: Yes (Other)
  Sender: FDA-Public Use
  Company Number: IT-PFIZER INC-2017301672

PATIENT
  Age: 62 Year
  Sex: Male

DRUGS (1)
  1. FENTANEST [Suspect]
     Active Substance: FENTANYL CITRATE

REACTIONS (2)
  - Erythema [Recovered/Resolved]
  - Oxygen saturation decreased [Recovered/Resolved]

NARRATIVE: CASE EVENT DATE: 20170707
